FAERS Safety Report 25542496 (Version 1)
Quarter: 2025Q3

REPORT INFORMATION
  Report Type: Spontaneous
  Country: US (occurrence: US)
  Receive Date: 20250711
  Receipt Date: 20250711
  Transmission Date: 20251020
  Serious: No
  Sender: BRISTOL-MYERS SQUIBB COMPANY
  Company Number: US-BRISTOL-MYERS SQUIBB COMPANY-2025-097080

PATIENT
  Age: 73 Year
  Sex: Female
  Weight: 67.77 kg

DRUGS (3)
  1. OPDIVO QVANTIG [Suspect]
     Active Substance: HYALURONIDASE-NVHY\NIVOLUMAB
     Indication: Non-small cell lung cancer
     Dosage: EVERY 4 WEEKS (2 X 600MG/10,000UNITS (5 ML))
     Route: 042
     Dates: start: 20250610
  2. DEXAMETHASONE [Concomitant]
     Active Substance: DEXAMETHASONE
     Indication: Premedication
  3. TYLENOL [Concomitant]
     Active Substance: ACETAMINOPHEN
     Indication: Premedication

REACTIONS (2)
  - Cardiomegaly [Unknown]
  - Off label use [Unknown]
